FAERS Safety Report 5562695-9 (Version None)
Quarter: 2007Q4

REPORT INFORMATION
  Report Type: 
  Country: None (occurrence: None)
  Receive Date: 20071211
  Receipt Date: 20071211
  Transmission Date: 20080405
  Serious: Yes (Other)
  Sender: FDA-Public Use
  Company Number: None

PATIENT
  Age: 39 Year
  Sex: Female
  Weight: 86.1834 kg

DRUGS (1)
  1. IBPROFEN 800MG [Suspect]
     Indication: BACK INJURY
     Dosage: ONE PILL  THREE TIMES A DAY
     Dates: start: 20071115, end: 20071118

REACTIONS (10)
  - BALANCE DISORDER [None]
  - DIZZINESS [None]
  - EMOTIONAL DISORDER [None]
  - FATIGUE [None]
  - FEELING ABNORMAL [None]
  - HEADACHE [None]
  - HYPERTENSION [None]
  - LOSS OF EMPLOYMENT [None]
  - VISION BLURRED [None]
  - WEIGHT DECREASED [None]
